FAERS Safety Report 4506331-9 (Version None)
Quarter: 2004Q4

REPORT INFORMATION
  Report Type: 
  Country: None (occurrence: None)
  Receive Date: 20041025
  Receipt Date: 20031223
  Transmission Date: 20050328
  Serious: Yes (Other)
  Sender: FDA-Public Use
  Company Number: US-JNJFOC-20031200259

PATIENT
  Age: 35 Year
  Sex: Female
  Weight: 80.7403 kg

DRUGS (4)
  1. REMICADE [Suspect]
     Indication: ANKYLOSING SPONDYLITIS
     Dosage: 5 MG/KG, 1 IN 8 WEEK, INTRAVENOUS
     Route: 042
     Dates: start: 20030819, end: 20031002
  2. REMICADE [Suspect]
     Indication: CROHN'S DISEASE
     Dosage: 5 MG/KG, 1 IN 8 WEEK, INTRAVENOUS
     Route: 042
     Dates: start: 20030819, end: 20031002
  3. AZATHIOPRINE [Concomitant]
  4. MESALAMINE [Concomitant]

REACTIONS (2)
  - ANXIETY [None]
  - HISTOPLASMOSIS [None]
